FAERS Safety Report 16847855 (Version 1)
Quarter: 2019Q3

REPORT INFORMATION
  Report Type: Other
  Country: US (occurrence: US)
  Receive Date: 20190924
  Receipt Date: 20190924
  Transmission Date: 20191005
  Serious: No
  Sender: FDA-Public Use
  Company Number: US-ACORDA-ACO_159618_2019

PATIENT
  Sex: Male

DRUGS (2)
  1. INBRIJA [Suspect]
     Active Substance: LEVODOPA
     Indication: PARKINSON^S DISEASE
     Dosage: 42 MG/ 84 MG AS NEEDED FOR OFF SYMPTOMS OF AN OFF PERIOD, NOT TO EXCEED 5 DOSES A DAY
     Route: 048
     Dates: start: 20190523
  2. INBRIJA [Suspect]
     Active Substance: LEVODOPA
     Indication: ON AND OFF PHENOMENON

REACTIONS (4)
  - Hallucination [Unknown]
  - Headache [Not Recovered/Not Resolved]
  - Abnormal dreams [Unknown]
  - Drug ineffective [Unknown]
